FAERS Safety Report 25008290 (Version 2)
Quarter: 2025Q1

REPORT INFORMATION
  Report Type: Spontaneous
  Country: FR (occurrence: None)
  Receive Date: 20250225
  Receipt Date: 20250318
  Transmission Date: 20250409
  Serious: Yes (Hospitalization)
  Sender: Valinor Pharma
  Company Number: FR-Valinor Pharma, LLC-VLR202502-000048

PATIENT
  Sex: Female

DRUGS (1)
  1. NALOXEGOL OXALATE [Suspect]
     Active Substance: NALOXEGOL OXALATE
     Indication: Ovarian cancer
     Route: 065

REACTIONS (4)
  - Hospitalisation [Unknown]
  - Product availability issue [Unknown]
  - Therapy interrupted [Unknown]
  - Contraindicated product administered [Unknown]
